FAERS Safety Report 8732855 (Version 2)
Quarter: 2013Q1

REPORT INFORMATION
  Report Type: Spontaneous
  Country: US (occurrence: US)
  Receive Date: 20120820
  Receipt Date: 20130208
  Transmission Date: 20140127
  Serious: Yes (Other)
  Sender: FDA-Public Use
  Company Number: US-PFIZER INC-2012199296

PATIENT
  Age: 69 Year
  Sex: Female
  Weight: 63.49 kg

DRUGS (9)
  1. ADVIL [Suspect]
     Indication: HEADACHE
     Dosage: 200 MG, AS NEEDED
     Route: 048
  2. ADVIL [Suspect]
     Indication: PAIN
     Dosage: 400 MG (TWO TABLETS OF 200 MG), AS NEEDED
     Route: 048
  3. JANUMET [Concomitant]
     Indication: DIABETES MELLITUS
     Dosage: 50/500 MG, DAILY
     Route: 048
  4. COZAAR [Concomitant]
     Dosage: UNK
  5. ZETIA [Concomitant]
     Dosage: UNK
  6. CRESTOR [Concomitant]
     Dosage: UNK
  7. LOVAZA [Concomitant]
     Dosage: UNK
  8. SYNTHROID [Concomitant]
     Dosage: UNK
  9. ASA [Concomitant]
     Dosage: 81 MG, UNK

REACTIONS (4)
  - Urticaria [Recovered/Resolved]
  - Blister [Recovered/Resolved]
  - Hypersensitivity [Recovered/Resolved]
  - Erythema [Recovered/Resolved]
